FAERS Safety Report 8469489 (Version 2)
Quarter: 2013Q3

REPORT INFORMATION
  Report Type: Report from Study
  Country: MX (occurrence: MX)
  Receive Date: 20120321
  Receipt Date: 20130814
  Transmission Date: 20140515
  Serious: Yes (Other)
  Sender: FDA-Public Use
  Company Number: PHHY2012MX020577

PATIENT
  Age: 75 Year
  Sex: Female

DRUGS (2)
  1. RASILEZ [Suspect]
     Indication: HYPERTENSION
     Dosage: 1 DF, QD
     Dates: start: 201006
  2. MICARDIS [Concomitant]
     Indication: HYPERTENSION
     Dosage: 3 DF, DAILY
     Dates: start: 200303

REACTIONS (4)
  - Spinal disorder [Not Recovered/Not Resolved]
  - Arthralgia [Recovered/Resolved]
  - Groin pain [Recovered/Resolved]
  - Local swelling [Not Recovered/Not Resolved]
